FAERS Safety Report 8442039-5 (Version None)
Quarter: 2012Q2

REPORT INFORMATION
  Report Type: 
  Country: None (occurrence: None)
  Receive Date: 20120615
  Receipt Date: 20120606
  Transmission Date: 20120825
  Serious: Yes (Hospitalization, Other)
  Sender: FDA-Public Use
  Company Number: US-BAYER-2012-018553

PATIENT
  Age: 34 Year
  Sex: Female
  Weight: 86.168 kg

DRUGS (8)
  1. DROSPIRENONE AND ETHINYL ESTRADIOL [Suspect]
     Indication: DYSMENORRHOEA
     Dosage: UNK
     Route: 048
     Dates: start: 20090316, end: 20100322
  2. YASMIN [Suspect]
     Indication: CONTRACEPTION
     Dosage: UNK
     Route: 048
     Dates: start: 20030905, end: 20060108
  3. FOLATE SODIUM [Concomitant]
     Dosage: 400 MG, ONCE
  4. MULTI-VITAMIN [Concomitant]
     Dosage: UNK UNK, ONCE
  5. CALCIUM [Concomitant]
     Dosage: 4 G, ONCE
  6. TRICOR [Concomitant]
     Dosage: 145 MG, HS
  7. SYNTHROID [Concomitant]
     Dosage: 200 MCG/24HR, ONCE
  8. DROSPIRENONE AND ETHINYL ESTRADIOL [Suspect]
     Indication: CONTRACEPTION

REACTIONS (8)
  - VENA CAVA THROMBOSIS [None]
  - THROMBOSIS [None]
  - PELVIC VENOUS THROMBOSIS [None]
  - NAUSEA [None]
  - OEDEMA PERIPHERAL [None]
  - VOMITING [None]
  - DEEP VEIN THROMBOSIS [None]
  - DIARRHOEA [None]
